FAERS Safety Report 7484062-3 (Version None)
Quarter: 2011Q2

REPORT INFORMATION
  Report Type: 
  Country: None (occurrence: None)
  Receive Date: 20110509
  Receipt Date: 20110427
  Transmission Date: 20111010
  Serious: Yes (Death)
  Sender: FDA-Public Use
  Company Number: 906835

PATIENT
  Age: 37 Year
  Sex: Male

DRUGS (3)
  1. (THERAPEUTIC RADIOPHARMACEUTICALS) [Suspect]
     Indication: B-CELL LYMPHOMA
     Dosage: 200 CGY
  2. FLUDARABINE PHOSPHATE [Suspect]
     Indication: B-CELL LYMPHOMA
  3. CYCLOPHOSPHAMIDE [Suspect]
     Indication: B-CELL LYMPHOMA

REACTIONS (3)
  - SEPSIS [None]
  - FUNGAL TEST POSITIVE [None]
  - NEUTROPENIA [None]
